FAERS Safety Report 10041505 (Version 3)
Quarter: 2014Q2

REPORT INFORMATION
  Report Type: Report from Study
  Country: JP (occurrence: JP)
  Receive Date: 20140327
  Receipt Date: 20140529
  Transmission Date: 20141212
  Serious: Yes (Hospitalization)
  Sender: FDA-Public Use
  Company Number: JP-DSJP-DSJ-2013-25858

PATIENT
  Sex: 0

DRUGS (7)
  1. OLMETEC TABLETS 20MG [Suspect]
     Indication: HYPERTENSION
     Dosage: 20 MG, QD
     Route: 048
     Dates: start: 20120602, end: 20131117
  2. BLINDED CLOPIDOGREL [Suspect]
     Indication: ISCHAEMIC STROKE
     Dosage: BLINDED
     Route: 048
     Dates: start: 20120609, end: 20131117
  3. BLINDED CS-747S [Suspect]
     Indication: ISCHAEMIC STROKE
     Dosage: BLINDED
     Route: 048
     Dates: start: 20120609, end: 20131117
  4. LIVALO [Concomitant]
     Indication: DYSLIPIDAEMIA
     Dosage: 1 MG, QD
     Route: 048
     Dates: start: 20120512, end: 20131117
  5. REBAMIPIDE [Concomitant]
     Indication: GASTRITIS PROPHYLAXIS
     Dosage: 100 MG, QD
     Route: 048
     Dates: start: 20120510, end: 20131117
  6. AMLODIPINE [Concomitant]
     Indication: HYPERTENSION
     Dosage: 5 MG, QD
     Route: 048
     Dates: start: 20120602, end: 20131117
  7. VOLTAREN                           /00372301/ [Concomitant]
     Indication: LUMBAR SPINAL STENOSIS
     Dosage: 25 MG, AS NEEDED
     Route: 048
     Dates: start: 20130118, end: 20131117

REACTIONS (5)
  - Subdural haematoma [Recovered/Resolved]
  - Brain contusion [Recovering/Resolving]
  - Subarachnoid haemorrhage [Recovered/Resolved]
  - Skull fracture [Not Recovered/Not Resolved]
  - Bacteraemia [Recovering/Resolving]
